FAERS Safety Report 11853650 (Version 1)
Quarter: 2015Q4

REPORT INFORMATION
  Report Type: Spontaneous
  Country: FR (occurrence: FR)
  Receive Date: 20151219
  Receipt Date: 20151219
  Transmission Date: 20160305
  Serious: Yes (Hospitalization)
  Sender: FDA-Public Use
  Company Number: FR-ABBVIE-15K-056-1519782-00

PATIENT
  Age: 39 Year
  Sex: Female

DRUGS (7)
  1. HUMIRA [Suspect]
     Active Substance: ADALIMUMAB
     Route: 058
     Dates: start: 200810, end: 201311
  2. HUMIRA [Suspect]
     Active Substance: ADALIMUMAB
     Route: 058
     Dates: start: 201405, end: 201504
  3. IMETH [Suspect]
     Active Substance: METHOTREXATE SODIUM
     Indication: RHEUMATOID ARTHRITIS
     Route: 065
     Dates: start: 1998, end: 1998
  4. UVEDOSE [Concomitant]
     Active Substance: CHOLECALCIFEROL
     Indication: PRODUCT USED FOR UNKNOWN INDICATION
  5. IMETH [Suspect]
     Active Substance: METHOTREXATE SODIUM
     Route: 065
     Dates: start: 200810, end: 201311
  6. IMETH [Suspect]
     Active Substance: METHOTREXATE SODIUM
     Route: 065
     Dates: start: 201405, end: 201406
  7. HUMIRA [Suspect]
     Active Substance: ADALIMUMAB
     Indication: RHEUMATOID ARTHRITIS
     Route: 058
     Dates: start: 2007

REACTIONS (10)
  - Vision blurred [Unknown]
  - Vitamin D deficiency [Unknown]
  - Myelopathy [Not Recovered/Not Resolved]
  - Disturbance in attention [Not Recovered/Not Resolved]
  - Memory impairment [Not Recovered/Not Resolved]
  - Rheumatoid arthritis [Unknown]
  - Toxicity to various agents [Unknown]
  - Antinuclear antibody positive [Unknown]
  - Demyelinating polyneuropathy [Not Recovered/Not Resolved]
  - CSF immunoglobulin increased [Unknown]

NARRATIVE: CASE EVENT DATE: 201312
